FAERS Safety Report 7258924-6 (Version None)
Quarter: 2011Q1

REPORT INFORMATION
  Report Type: 
  Country: None (occurrence: None)
  Receive Date: 20110129
  Receipt Date: 20100614
  Transmission Date: 20110831
  Serious: No
  Sender: FDA-Public Use
  Company Number: US-ABBOTT-10P-163-0651183-00

PATIENT
  Sex: Female

DRUGS (2)
  1. HUMIRA [Suspect]
     Indication: RHEUMATOID ARTHRITIS
     Route: 058
     Dates: start: 20040101
  2. DIOVAN [Concomitant]
     Indication: HYPERTENSION
     Dosage: DAILY

REACTIONS (6)
  - DEVICE MALFUNCTION [None]
  - PARAESTHESIA [None]
  - POOR QUALITY DRUG ADMINISTERED [None]
  - VOMITING [None]
  - ABDOMINAL PAIN UPPER [None]
  - LIQUID PRODUCT PHYSICAL ISSUE [None]
